FAERS Safety Report 5053151-5 (Version None)
Quarter: 2006Q3

REPORT INFORMATION
  Report Type: 
  Country: None (occurrence: None)
  Receive Date: 20060712
  Receipt Date: 20060630
  Transmission Date: 20061208
  Serious: Yes (Other)
  Sender: FDA-Public Use
  Company Number: 2005134716

PATIENT
  Age: 46 Year
  Sex: Female
  Weight: 77.1115 kg

DRUGS (4)
  1. CELEBREX [Suspect]
     Indication: ILL-DEFINED DISORDER
  2. BEXTRA [Suspect]
     Indication: MUSCULOSKELETAL STIFFNESS
     Dosage: 2-3 PER DAY (20 MG
     Dates: start: 20030101, end: 20040101
  3. BEXTRA [Suspect]
     Indication: PAIN
     Dosage: 2-3 PER DAY (20 MG
     Dates: start: 20030101, end: 20040101
  4. VIOXX [Suspect]
     Indication: ILL-DEFINED DISORDER

REACTIONS (5)
  - CARDIAC FAILURE CONGESTIVE [None]
  - CARDIOVASCULAR DISORDER [None]
  - CEREBRAL THROMBOSIS [None]
  - INTRACARDIAC THROMBUS [None]
  - THROMBOSIS [None]
